FAERS Safety Report 8965222 (Version 1)
Quarter: 2012Q4

REPORT INFORMATION
  Report Type: 
  Country: US (occurrence: US)
  Receive Date: 20121213
  Receipt Date: 20121213
  Transmission Date: 20130627
  Serious: No
  Sender: FDA-Public Use
  Company Number: US-BRISTOL-MYERS SQUIBB COMPANY-16769366

PATIENT
  Age: 62 Year
  Sex: Female

DRUGS (1)
  1. IXEMPRA [Suspect]
     Indication: BREAST CANCER METASTATIC
     Dosage: 15 mg vial,Stopped 5Jul2012:restarted on 15Jul12
     Route: 042
     Dates: start: 20120521

REACTIONS (2)
  - Chest discomfort [Recovering/Resolving]
  - Flushing [Recovering/Resolving]
